FAERS Safety Report 13179207 (Version 4)
Quarter: 2017Q2

REPORT INFORMATION
  Report Type: Report from Study
  Country: LB (occurrence: LB)
  Receive Date: 20170202
  Receipt Date: 20170608
  Transmission Date: 20170830
  Serious: Yes (Other)
  Sender: FDA-Public Use
  Company Number: PHHY2013LB162998

PATIENT
  Sex: Female

DRUGS (11)
  1. APO PRAVASTATIN [Concomitant]
     Indication: PRODUCT USED FOR UNKNOWN INDICATION
     Dosage: 1 DF, QD (40 MG)
     Route: 048
  2. MAGNESIUM [Concomitant]
     Active Substance: MAGNESIUM
     Indication: PRODUCT USED FOR UNKNOWN INDICATION
  3. TASIGNA [Suspect]
     Active Substance: NILOTINIB
     Indication: CHRONIC MYELOID LEUKAEMIA
     Dosage: 600 MG, QD
     Route: 048
     Dates: start: 201111
  4. URODIL [Concomitant]
     Indication: PRODUCT USED FOR UNKNOWN INDICATION
     Dosage: QMO (ONCE MONTH)
     Route: 048
     Dates: start: 201403
  5. AVALOX [Concomitant]
     Active Substance: MOXIFLOXACIN HYDROCHLORIDE
     Indication: PRODUCT USED FOR UNKNOWN INDICATION
     Route: 065
  6. CALCIUM [Concomitant]
     Active Substance: CALCIUM
     Indication: PRODUCT USED FOR UNKNOWN INDICATION
     Dosage: 1 DF, Q12H
     Route: 048
     Dates: start: 201303
  7. DIOVOL [Concomitant]
     Indication: PRODUCT USED FOR UNKNOWN INDICATION
     Dosage: UNK, PRN (SOS)
     Route: 048
  8. PREDNISONE. [Concomitant]
     Active Substance: PREDNISONE
     Indication: PRODUCT USED FOR UNKNOWN INDICATION
     Route: 065
  9. PENTASA [Concomitant]
     Active Substance: MESALAMINE
     Indication: PRODUCT USED FOR UNKNOWN INDICATION
     Dosage: 2 MG, Q12H
     Route: 048
     Dates: start: 201701
  10. MUCOSOLVAN [Concomitant]
     Active Substance: AMBROXOL HYDROCHLORIDE
     Indication: PRODUCT USED FOR UNKNOWN INDICATION
     Route: 065
  11. APO PRAVASTATIN [Concomitant]
     Dosage: 20 MG, UNK
     Route: 048

REACTIONS (24)
  - Memory impairment [Unknown]
  - Muscle spasms [Not Recovered/Not Resolved]
  - Dizziness [Not Recovered/Not Resolved]
  - Blood cholesterol increased [Not Recovered/Not Resolved]
  - Pain in extremity [Recovered/Resolved]
  - Gene mutation identification test positive [Not Recovered/Not Resolved]
  - Ovarian cyst [Not Recovered/Not Resolved]
  - Vitamin D deficiency [Not Recovered/Not Resolved]
  - Breast pain [Recovering/Resolving]
  - Cough [Recovering/Resolving]
  - Pyrexia [Unknown]
  - Dyslipidaemia [Not Recovered/Not Resolved]
  - Rash [Recovering/Resolving]
  - Erythema [Recovering/Resolving]
  - Back pain [Recovering/Resolving]
  - Anaemia [Not Recovered/Not Resolved]
  - Influenza [Not Recovered/Not Resolved]
  - Colitis ulcerative [Unknown]
  - Rectal haemorrhage [Not Recovered/Not Resolved]
  - Blood cholesterol increased [Recovered/Resolved]
  - Alopecia [Not Recovered/Not Resolved]
  - Myalgia [Recovered/Resolved]
  - Intervertebral disc protrusion [Not Recovered/Not Resolved]
  - Dry skin [Recovering/Resolving]

NARRATIVE: CASE EVENT DATE: 201306
